FAERS Safety Report 7624455-4 (Version None)
Quarter: 2011Q3

REPORT INFORMATION
  Report Type: 
  Country: None (occurrence: None)
  Receive Date: 20110720
  Receipt Date: 20110705
  Transmission Date: 20111222
  Serious: No
  Sender: FDA-Public Use
  Company Number: JP-CTI_01364_2011

PATIENT
  Sex: Female

DRUGS (4)
  1. MEIACT MS (CEFDITOREN PIVOXIL) [Suspect]
     Indication: INFECTION
     Route: 048
     Dates: start: 20110523, end: 20110525
  2. TIPEPIDINE HIBENZATE [Concomitant]
     Indication: PRODUCT USED FOR UNKNOWN INDICATION
     Route: 048
     Dates: start: 20110523
  3. CYPROHEPTADINE HYDROCHLORIDE HYDRATE [Concomitant]
     Indication: PRODUCT USED FOR UNKNOWN INDICATION
     Route: 048
     Dates: start: 20110523
  4. L-CARBOCISTEINE [Concomitant]
     Indication: PRODUCT USED FOR UNKNOWN INDICATION
     Route: 048
     Dates: start: 20110523

REACTIONS (1)
  - EYELID PTOSIS [None]
